FAERS Safety Report 6971688-6 (Version None)
Quarter: 2010Q3

REPORT INFORMATION
  Report Type: 
  Country: None (occurrence: None)
  Receive Date: 20100908
  Receipt Date: 20091206
  Transmission Date: 20110219
  Serious: Yes (Other)
  Sender: FDA-Public Use
  Company Number: US-PFIZER INC-2009287438

PATIENT

DRUGS (2)
  1. NARDIL [Suspect]
     Indication: ANXIETY
  2. NARDIL [Suspect]
     Indication: DEPRESSION

REACTIONS (3)
  - EPINEPHRINE INCREASED [None]
  - HYPERTENSION [None]
  - PALPITATIONS [None]
